FAERS Safety Report 17610622 (Version 2)
Quarter: 2020Q2

REPORT INFORMATION
  Report Type: Spontaneous
  Country: CN (occurrence: CN)
  Receive Date: 20200401
  Receipt Date: 20200407
  Transmission Date: 20200713
  Serious: Yes (Other)
  Sender: FDA-Public Use
  Company Number: CN-PFIZER INC-2020135401

PATIENT
  Age: 24 Day
  Sex: Male

DRUGS (14)
  1. CASPOFUNGIN [Suspect]
     Active Substance: CASPOFUNGIN
     Indication: PNEUMONIA
  2. SODIUM FUSIDATE [Suspect]
     Active Substance: FUSIDATE SODIUM
     Indication: INFECTION PROPHYLAXIS
     Dosage: UNK
  3. CASPOFUNGIN [Suspect]
     Active Substance: CASPOFUNGIN
     Indication: FUNGAL INFECTION
     Dosage: UNK
  4. METHYLPREDNISOLONE. [Concomitant]
     Active Substance: METHYLPREDNISOLONE
     Indication: COAGULOPATHY
     Dosage: 5 MG, 2X/DAY
  5. VORICONAZOLE. [Suspect]
     Active Substance: VORICONAZOLE
     Indication: INFECTION PROPHYLAXIS
     Dosage: UNK
  6. SODIUM FUSIDATE [Suspect]
     Active Substance: FUSIDATE SODIUM
     Indication: PNEUMONIA
  7. MEROPENEM. [Suspect]
     Active Substance: MEROPENEM
     Indication: INFECTION PROPHYLAXIS
     Dosage: UNK
  8. MEROPENEM. [Suspect]
     Active Substance: MEROPENEM
     Indication: PNEUMONIA
  9. SIROLIMUS. [Concomitant]
     Active Substance: SIROLIMUS
     Indication: KAPOSI^S SARCOMA
     Dosage: 0.7 MG/M2, 2X/DAY (0.7 MG/M^2/D,Q12 HOURS)
     Route: 048
  10. PREDNISONE. [Concomitant]
     Active Substance: PREDNISONE
     Indication: HAEMANGIOMA-THROMBOCYTOPENIA SYNDROME
  11. METHYLPREDNISOLONE. [Concomitant]
     Active Substance: METHYLPREDNISOLONE
     Dosage: 4 MG/KG, DAILY
  12. PREDNISONE. [Concomitant]
     Active Substance: PREDNISONE
     Indication: KAPOSI^S SARCOMA
     Dosage: 40 MG, 1X/DAY (Q.D)
     Route: 048
  13. VORICONAZOLE. [Suspect]
     Active Substance: VORICONAZOLE
     Indication: PNEUMONIA
  14. SIROLIMUS. [Concomitant]
     Active Substance: SIROLIMUS
     Indication: HAEMANGIOMA-THROMBOCYTOPENIA SYNDROME

REACTIONS (5)
  - Drug ineffective [Unknown]
  - Neonatal multi-organ failure [Unknown]
  - Neonatal respiratory failure [Unknown]
  - Circulatory failure neonatal [Unknown]
  - Neonatal respiratory distress syndrome [Unknown]
